FAERS Safety Report 19122676 (Version 1)
Quarter: 2021Q2

REPORT INFORMATION
  Report Type: Spontaneous
  Country: US (occurrence: US)
  Receive Date: 20210412
  Receipt Date: 20210412
  Transmission Date: 20210717
  Serious: Yes (Other)
  Sender: FDA-Public Use
  Company Number: US-PFIZER INC-2021352908

PATIENT
  Age: 7 Month
  Sex: Female

DRUGS (9)
  1. CYTARABINE. [Suspect]
     Active Substance: CYTARABINE
     Indication: ACUTE LEUKAEMIA
     Dosage: 30MIN 75 MG/M2/DOSE
     Route: 042
  2. VINCRISTINE SULFATE. [Suspect]
     Active Substance: VINCRISTINE SULFATE
     Indication: ACUTE LEUKAEMIA
     Dosage: IV PUSH 1.5 MG/M2/DOSE
     Route: 042
  3. PREDNISONE. [Suspect]
     Active Substance: PREDNISONE
     Dosage: ITH ACC. TO AGE
     Route: 037
  4. DAUNORUBICIN [Suspect]
     Active Substance: DAUNORUBICIN
     Indication: ACUTE LEUKAEMIA
     Dosage: 1HR 30 MG/M2/DOSE
     Route: 042
  5. L?ASP [Suspect]
     Active Substance: ASPARAGINASE
     Indication: ACUTE LEUKAEMIA
     Dosage: 1HR 10000 U/M2/DOSE
     Route: 042
  6. DEXAMETHASONE. [Suspect]
     Active Substance: DEXAMETHASONE
     Indication: ACUTE LEUKAEMIA
     Dosage: PO/IV 6 MG/M2/DAY
  7. METHOTREXATE SODIUM. [Suspect]
     Active Substance: METHOTREXATE SODIUM
     Indication: ACUTE LEUKAEMIA
     Dosage: ITH ACC. TO AGE
     Route: 037
  8. CYTARABINE. [Suspect]
     Active Substance: CYTARABINE
     Dosage: ITH ACC. TO AGE
     Route: 037
  9. PREDNISONE. [Suspect]
     Active Substance: PREDNISONE
     Indication: ACUTE LEUKAEMIA
     Dosage: PO/IV 60 MG/M2/DAY

REACTIONS (1)
  - Febrile neutropenia [Unknown]
